FAERS Safety Report 7073688-7 (Version None)
Quarter: 2010Q4

REPORT INFORMATION
  Report Type: 
  Country: None (occurrence: None)
  Receive Date: 20101028
  Receipt Date: 20101028
  Transmission Date: 20110411
  Serious: Yes (Disabling)
  Sender: FDA-Public Use
  Company Number: None

PATIENT
  Sex: Female
  Weight: 5.4432 kg

DRUGS (1)
  1. TEETHING TABLETS 3X HYLAND'S [Suspect]
     Indication: TEETHING
     Dosage: 1 TABLET EVERY HOUR BUCCAL
     Route: 002
     Dates: start: 20100813, end: 20101017

REACTIONS (2)
  - GASTROINTESTINAL DISORDER [None]
  - PRODUCT QUALITY ISSUE [None]
